FAERS Safety Report 15888553 (Version 1)
Quarter: 2019Q1

REPORT INFORMATION
  Report Type: Spontaneous
  Country: FR (occurrence: FR)
  Receive Date: 20190130
  Receipt Date: 20190130
  Transmission Date: 20190417
  Serious: Yes (Hospitalization)
  Sender: FDA-Public Use
  Company Number: FR-MYLANLABS-2019M1006750

PATIENT
  Age: 47 Year
  Sex: Female

DRUGS (11)
  1. ANDROCUR [Suspect]
     Active Substance: CYPROTERONE ACETATE
     Dosage: 12.5
     Route: 048
     Dates: start: 199209
  2. ANDROCUR [Suspect]
     Active Substance: CYPROTERONE ACETATE
     Dosage: 1/2 TABLET OF 25MG DAILY
     Route: 048
     Dates: start: 1997, end: 20130810
  3. ETHINYLESTRADIOL [Concomitant]
     Active Substance: ETHINYL ESTRADIOL
     Indication: PRODUCT USED FOR UNKNOWN INDICATION
     Dosage: UNK
     Dates: start: 198701, end: 198708
  4. ANDROCUR [Suspect]
     Active Substance: CYPROTERONE ACETATE
     Indication: POLYCYSTIC OVARIES
     Dosage: 50 MILLIGRAM, QD
     Route: 048
     Dates: start: 198701, end: 198708
  5. MINIDRIL [Suspect]
     Active Substance: ETHINYL ESTRADIOL\LEVONORGESTREL
     Indication: PRODUCT USED FOR UNKNOWN INDICATION
     Dosage: UNK
     Route: 048
     Dates: start: 198609, end: 198610
  6. ANDROCUR [Suspect]
     Active Substance: CYPROTERONE ACETATE
     Dosage: 1/2 TABLET OF 25 MG PER DAY
     Route: 048
     Dates: start: 198709
  7. ANDROCUR [Suspect]
     Active Substance: CYPROTERONE ACETATE
     Dosage: 12.5 MILLIGRAM, QD
     Route: 048
     Dates: start: 198810
  8. CLOMIFENE [Concomitant]
     Active Substance: CLOMIPHENE
     Indication: PRODUCT USED FOR UNKNOWN INDICATION
  9. STEDIRIL                           /00022701/ [Suspect]
     Active Substance: ETHINYL ESTRADIOL\LEVONORGESTREL
     Indication: PRODUCT USED FOR UNKNOWN INDICATION
     Dosage: UNK
     Route: 048
     Dates: start: 198404, end: 198410
  10. PERINDOPRIL [Concomitant]
     Active Substance: PERINDOPRIL
     Indication: HYPERTENSION
     Dosage: UNK
     Route: 048
     Dates: start: 2011
  11. ESTRADIOL MYLAN [Suspect]
     Active Substance: ESTRADIOL
     Indication: PRODUCT USED FOR UNKNOWN INDICATION
     Dosage: 0.33 DOSAGE FORM, Q3D
     Route: 003
     Dates: start: 199209, end: 2013

REACTIONS (2)
  - Treatment noncompliance [Recovered/Resolved]
  - Meningioma [Not Recovered/Not Resolved]

NARRATIVE: CASE EVENT DATE: 199209
